FAERS Safety Report 9657415 (Version 1)
Quarter: 2013Q4

REPORT INFORMATION
  Report Type: Report from Study
  Country: CA (occurrence: CA)
  Receive Date: 20131030
  Receipt Date: 20131030
  Transmission Date: 20140711
  Serious: Yes (Other)
  Sender: FDA-Public Use
  Company Number: CA-ROCHE-1294712

PATIENT
  Age: 9 Year
  Sex: Female
  Weight: 24 kg

DRUGS (3)
  1. SOMATROPIN [Suspect]
     Indication: PRODUCT USED FOR UNKNOWN INDICATION
     Dosage: THERAPY DURATION: 237 DAYS
     Route: 058
  2. LUPRON [Concomitant]
     Route: 065
  3. THYROXINE [Concomitant]
     Route: 065

REACTIONS (1)
  - Neoplasm progression [Not Recovered/Not Resolved]
